FAERS Safety Report 15057099 (Version 6)
Quarter: 2019Q2

REPORT INFORMATION
  Report Type: Spontaneous
  Country: US (occurrence: US)
  Receive Date: 20180624
  Receipt Date: 20190602
  Transmission Date: 20190711
  Serious: Yes (Other)
  Sender: FDA-Public Use
  Company Number: US-JNJFOC-20180612320

PATIENT
  Sex: Male
  Weight: 76.2 kg

DRUGS (4)
  1. METOLAZONE. [Concomitant]
     Active Substance: METOLAZONE
     Route: 048
     Dates: end: 201706
  2. ZYTIGA [Suspect]
     Active Substance: ABIRATERONE ACETATE
     Indication: PROSTATE CANCER
     Route: 048
     Dates: start: 20180730
  3. ZYTIGA [Suspect]
     Active Substance: ABIRATERONE ACETATE
     Indication: PROSTATE CANCER
     Dosage: ABOUT 4 YEARS??500 MG X 2 TABLETS ONCE DAILY
     Route: 048
     Dates: end: 201805
  4. PREDNISONE. [Concomitant]
     Active Substance: PREDNISONE
     Route: 048

REACTIONS (10)
  - Off label use [Unknown]
  - Prostatic specific antigen increased [Recovering/Resolving]
  - Contusion [Unknown]
  - Rash macular [Unknown]
  - Peripheral swelling [Recovering/Resolving]
  - Drug ineffective [Unknown]
  - Pain in extremity [Unknown]
  - Product use in unapproved indication [Unknown]
  - Adverse drug reaction [Unknown]
  - Body height decreased [Not Recovered/Not Resolved]

NARRATIVE: CASE EVENT DATE: 2018
